FAERS Safety Report 7609896-3 (Version None)
Quarter: 2011Q3

REPORT INFORMATION
  Report Type: 
  Country: None (occurrence: None)
  Receive Date: 20110714
  Receipt Date: 20110705
  Transmission Date: 20111222
  Serious: Yes (Hospitalization, Disabling)
  Sender: FDA-Public Use
  Company Number: US-ELI_LILLY_AND_COMPANY-US201107001940

PATIENT
  Sex: Male

DRUGS (6)
  1. HUMALOG [Suspect]
     Dosage: UNK UNK, PRN
  2. HUMULIN N [Suspect]
     Dosage: UNK
     Dates: end: 19970101
  3. NOVOLOG MIX 70/30 [Concomitant]
  4. HUMULIN R [Suspect]
     Dosage: UNK
     Dates: end: 19970101
  5. HUMALOG [Suspect]
     Dosage: UNK, PRN
  6. LANTUS [Concomitant]
     Dosage: UNK

REACTIONS (6)
  - VISUAL IMPAIRMENT [None]
  - EYE IRRITATION [None]
  - DRY EYE [None]
  - PANCREAS TRANSPLANT [None]
  - EYELID DISORDER [None]
  - RENAL TRANSPLANT [None]
